FAERS Safety Report 21272534 (Version 3)
Quarter: 2022Q3

REPORT INFORMATION
  Report Type: Spontaneous
  Country: JP (occurrence: None)
  Receive Date: 20220830
  Receipt Date: 20220909
  Transmission Date: 20221026
  Serious: Yes (Other)
  Sender: FDA-Public Use
  Company Number: 2022A269945

PATIENT
  Age: 81 Year
  Sex: Male

DRUGS (6)
  1. BREZTRI [Suspect]
     Active Substance: BUDESONIDE\FORMOTEROL\GLYCOPYRROLATE
     Indication: Emphysema
     Dosage: DOSE UNKNOWN
     Route: 055
     Dates: start: 20220323, end: 20220720
  2. URSODIOL [Concomitant]
     Active Substance: URSODIOL
     Dosage: 1200 MG THREE TIMES A DAY, AFTER EACH MEAL
     Route: 048
  3. AMINO ACIDS, SOURCE UNSPECIFIED [Concomitant]
     Active Substance: AMINO ACIDS, SOURCE UNSPECIFIED
     Dosage: 1 DF THREE TIMES A DAY, AFTER EACH MEAL
     Route: 048
  4. AZOSEMIDE [Concomitant]
     Active Substance: AZOSEMIDE
     Dosage: 30 MG DAILY, AFTER BREAKFAST
     Route: 048
  5. MIYA-BM [Concomitant]
     Active Substance: CLOSTRIDIUM BUTYRICUM SPORES STRAIN M-55
     Dosage: 1 DF THREE TIMES A DAY, AFTER EACH MEAL
     Route: 048
  6. SPIRONOLACTONE [Concomitant]
     Active Substance: SPIRONOLACTONE
     Dosage: 25 MG DAILY, AFTER DINNER
     Route: 048

REACTIONS (5)
  - Overdose [Unknown]
  - Oliguria [Not Recovered/Not Resolved]
  - Dysuria [Not Recovered/Not Resolved]
  - Urinary retention [Not Recovered/Not Resolved]
  - Urinary occult blood [Not Recovered/Not Resolved]

NARRATIVE: CASE EVENT DATE: 20220701
